FAERS Safety Report 7019275-8 (Version None)
Quarter: 2010Q3

REPORT INFORMATION
  Report Type: 
  Country: None (occurrence: None)
  Receive Date: 20100923
  Receipt Date: 20100920
  Transmission Date: 20110219
  Serious: Yes (Death)
  Sender: FDA-Public Use
  Company Number: AE-910-308

PATIENT
  Age: 55 Year
  Sex: Male

DRUGS (13)
  1. LIDODERM [Suspect]
     Indication: BONE DISORDER
     Dosage: 2 PATCHES A DAY
     Dates: start: 20060101
  2. ATIVAN [Concomitant]
  3. ZOCOR [Concomitant]
  4. NORCO [Concomitant]
  5. TRIAMCINOLONE [Concomitant]
  6. SOMA [Concomitant]
  7. NEURONTIN [Concomitant]
  8. LASIX [Concomitant]
  9. LISINOPRIL [Concomitant]
  10. POTASSIUM [Concomitant]
  11. ALBUTEROL [Concomitant]
  12. NITROGLYCERIN [Concomitant]
  13. ASPIRIN [Concomitant]

REACTIONS (1)
  - LUNG DISORDER [None]
